FAERS Safety Report 6937834-5 (Version None)
Quarter: 2010Q3

REPORT INFORMATION
  Report Type: 
  Country: None (occurrence: None)
  Receive Date: 20100824
  Receipt Date: 20100812
  Transmission Date: 20110219
  Serious: Yes (Hospitalization, Other)
  Sender: FDA-Public Use
  Company Number: FR-BIOGENIDEC-2010BI002229

PATIENT
  Age: 23 Year
  Sex: Female

DRUGS (17)
  1. TYSABRI [Suspect]
     Indication: MULTIPLE SCLEROSIS
     Route: 042
     Dates: start: 20081201, end: 20091124
  2. MUSCLE RELAXANTS (NOS) [Concomitant]
  3. NSAIDS (NOS) [Concomitant]
  4. GASTRIC ANTI-SECRETION AGENT (NOS) [Concomitant]
  5. ANXIOLYTIC (NOS) [Concomitant]
  6. LAXATIVE (NOS) [Concomitant]
  7. ALPHA BLOCKER (NOS) [Concomitant]
  8. ANTI-EPILEPTIC (NOS) [Concomitant]
  9. NEURONTIN [Concomitant]
     Indication: EPILEPSY
     Route: 048
     Dates: start: 20090401
  10. LIORESAL [Concomitant]
     Indication: MUSCLE RELAXANT THERAPY
     Route: 048
  11. CYMBALTA [Concomitant]
     Indication: ANXIETY
     Route: 048
     Dates: start: 20081201
  12. ALFUZOSIN HCL [Concomitant]
     Indication: URINARY TRACT DISORDER
     Route: 048
     Dates: start: 20080801
  13. CERIS [Concomitant]
     Indication: URINARY TRACT DISORDER
     Dates: start: 20080501
  14. NEXIUM [Concomitant]
     Route: 048
  15. UVEDOSE [Concomitant]
     Indication: VITAMIN D DEFICIENCY
     Route: 048
     Dates: start: 20091201
  16. RIVOTRIL [Concomitant]
     Indication: PAIN
     Route: 048
  17. URBANYL [Concomitant]
     Indication: ANXIETY
     Route: 048
     Dates: start: 20091201

REACTIONS (11)
  - BLINDNESS [None]
  - CENTRAL NERVOUS SYSTEM LESION [None]
  - INFECTION PARASITIC [None]
  - LUNG DISORDER [None]
  - MULTIPLE SCLEROSIS RELAPSE [None]
  - MUTISM [None]
  - NERVOUS SYSTEM DISORDER [None]
  - OPTIC ATROPHY [None]
  - OPTIC NEURITIS [None]
  - SPLENIC INFARCTION [None]
  - SYNCOPE [None]
